FAERS Safety Report 25588153 (Version 1)
Quarter: 2025Q3

REPORT INFORMATION
  Report Type: Spontaneous
  Country: US (occurrence: US)
  Receive Date: 20250722
  Receipt Date: 20250722
  Transmission Date: 20251021
  Serious: Yes (Other)
  Sender: STRIDES
  Company Number: US-STRIDES ARCOLAB LIMITED-2025SP009093

PATIENT

DRUGS (3)
  1. FUROSEMIDE [Suspect]
     Active Substance: FUROSEMIDE
     Indication: Product used for unknown indication
     Route: 065
  2. FOSCARNET [Suspect]
     Active Substance: FOSCARNET
     Indication: Product used for unknown indication
     Route: 065
  3. PIPERACILLIN AND TAZOBACTAM [Suspect]
     Active Substance: PIPERACILLIN SODIUM\TAZOBACTAM SODIUM
     Indication: Product used for unknown indication
     Route: 065

REACTIONS (1)
  - Acute kidney injury [Unknown]
